FAERS Safety Report 16346069 (Version 1)
Quarter: 2019Q2

REPORT INFORMATION
  Report Type: Spontaneous
  Country: US (occurrence: US)
  Receive Date: 20190523
  Receipt Date: 20190523
  Transmission Date: 20190711
  Serious: Yes (Other)
  Sender: FDA-Public Use
  Company Number: US-ACS-001408

PATIENT
  Age: 57 Year
  Sex: Female

DRUGS (2)
  1. CEFEPIME [Suspect]
     Active Substance: CEFEPIME HYDROCHLORIDE
     Indication: OSTEOMYELITIS
     Route: 042
     Dates: end: 20190201
  2. VANCOMYCIN [Suspect]
     Active Substance: VANCOMYCIN
     Indication: OSTEOMYELITIS
     Route: 042
     Dates: end: 20190201

REACTIONS (1)
  - Drug ineffective [Unknown]
